FAERS Safety Report 4491718-3 (Version None)
Quarter: 2004Q4

REPORT INFORMATION
  Report Type: 
  Country: None (occurrence: None)
  Receive Date: 20041103
  Receipt Date: 20040611
  Transmission Date: 20050328
  Serious: Yes (Hospitalization, Disabling)
  Sender: FDA-Public Use
  Company Number: US-MERCK-0406USA01553

PATIENT
  Age: 49 Year
  Sex: Male
  Weight: 84 kg

DRUGS (13)
  1. VIOXX [Suspect]
     Indication: SPONDYLITIS
     Route: 048
     Dates: start: 19990101
  2. VIOXX [Suspect]
     Route: 048
     Dates: start: 20011201, end: 20020101
  3. VIOXX [Suspect]
     Route: 048
     Dates: start: 20021201, end: 20030501
  4. VIOXX [Suspect]
     Indication: ARTHRITIS
     Route: 048
     Dates: start: 19990101
  5. VIOXX [Suspect]
     Route: 048
     Dates: start: 20011201, end: 20020101
  6. VIOXX [Suspect]
     Route: 048
     Dates: start: 20021201, end: 20030501
  7. CLARITIN-D [Concomitant]
     Indication: HYPERSENSITIVITY
     Route: 065
  8. FLOMAX [Concomitant]
     Indication: PROSTATIC DISORDER
     Route: 065
  9. FLONASE [Concomitant]
     Indication: HYPERSENSITIVITY
     Route: 065
  10. DIAZEPAM [Concomitant]
     Indication: MIGRAINE
     Route: 065
  11. PLENDIL [Concomitant]
     Indication: HYPERTENSION
     Route: 065
  12. PRAVACHOL [Concomitant]
     Route: 065
  13. WELLBUTRIN [Concomitant]
     Route: 065

REACTIONS (24)
  - ABDOMINAL PAIN [None]
  - ANXIETY [None]
  - BACK PAIN [None]
  - BENIGN PROSTATIC HYPERPLASIA [None]
  - BLOOD TRIGLYCERIDES INCREASED [None]
  - CHOLECYSTECTOMY [None]
  - DEHYDRATION [None]
  - DEPRESSION [None]
  - EMOTIONAL DISTRESS [None]
  - GALLBLADDER DISORDER [None]
  - GOUT [None]
  - HERNIA [None]
  - HODGKIN'S DISEASE [None]
  - HYPERCHOLESTEROLAEMIA [None]
  - MYALGIA [None]
  - NEPHROSCLEROSIS [None]
  - PAIN [None]
  - PROCEDURAL SITE REACTION [None]
  - RENAL FAILURE ACUTE [None]
  - RENAL IMPAIRMENT [None]
  - RENAL INJURY [None]
  - RENAL TUBULAR NECROSIS [None]
  - SCAR [None]
  - SINUSITIS [None]
